FAERS Safety Report 6642360-7 (Version None)
Quarter: 2010Q1

REPORT INFORMATION
  Report Type: 
  Country: None (occurrence: None)
  Receive Date: 20100319
  Receipt Date: 20100318
  Transmission Date: 20100710
  Serious: Yes (Other)
  Sender: FDA-Public Use
  Company Number: JP-SANOFI-AVENTIS-2010SA015347

PATIENT
  Age: 56 Year
  Sex: Male

DRUGS (2)
  1. AMARYL [Suspect]
     Dates: start: 20081001
  2. CALBLOCK [Suspect]

REACTIONS (1)
  - BLOOD POTASSIUM INCREASED [None]
